FAERS Safety Report 5238821-8 (Version None)
Quarter: 2007Q1

REPORT INFORMATION
  Report Type: 
  Country: None (occurrence: None)
  Receive Date: 20070215
  Receipt Date: 20070207
  Transmission Date: 20070707
  Serious: Yes (Other)
  Sender: FDA-Public Use
  Company Number: JP-PFIZER INC-2006147757

PATIENT
  Sex: Male
  Weight: 83 kg

DRUGS (4)
  1. ALDACTONE [Suspect]
     Indication: OEDEMA PERIPHERAL
     Dosage: DAILY DOSE:25MG
     Route: 048
     Dates: start: 20060711, end: 20070101
  2. LONGES [Suspect]
     Route: 048
  3. LEVITRA [Suspect]
     Dosage: DAILY DOSE:10MG
     Route: 048
     Dates: start: 20060331
  4. FLUITRAN [Concomitant]
     Dosage: DAILY DOSE:10MG
     Route: 048
     Dates: start: 20060213

REACTIONS (2)
  - DIABETES MELLITUS [None]
  - NEUROPATHY PERIPHERAL [None]
